FAERS Safety Report 6889893-6 (Version None)
Quarter: 2010Q3

REPORT INFORMATION
  Report Type: 
  Country: None (occurrence: None)
  Receive Date: 20100730
  Receipt Date: 20080721
  Transmission Date: 20110219
  Serious: No
  Sender: FDA-Public Use
  Company Number: US-PFIZER INC-2008049488

PATIENT
  Sex: Female
  Weight: 77.3 kg

DRUGS (3)
  1. LIPITOR [Suspect]
     Indication: BLOOD CHOLESTEROL INCREASED
     Dates: start: 20080501
  2. LEVOXYL [Concomitant]
     Indication: THYROID DISORDER
  3. ZANTAC [Concomitant]
     Indication: DYSPEPSIA

REACTIONS (3)
  - ABDOMINAL PAIN UPPER [None]
  - FLATULENCE [None]
  - SOMNOLENCE [None]
